FAERS Safety Report 8305407 (Version 5)
Quarter: 2013Q3

REPORT INFORMATION
  Report Type: Report from Study
  Country: US (occurrence: US)
  Receive Date: 20111221
  Receipt Date: 20130729
  Transmission Date: 20140515
  Serious: Yes (Other)
  Sender: FDA-Public Use
  Company Number: US-BRISTOL-MYERS SQUIBB COMPANY-16285207

PATIENT
  Age: 87 Year
  Sex: Male

DRUGS (6)
  1. METFORMIN HCL [Suspect]
     Indication: TYPE 2 DIABETES MELLITUS
     Dates: end: 20120814
  2. AMARYL [Suspect]
     Indication: TYPE 2 DIABETES MELLITUS
     Dosage: RESTARTED ON 17JAN11:4MG?PREVIOUSLY 2MG
  3. PLACEBO [Suspect]
     Indication: TYPE 2 DIABETES MELLITUS
     Dates: start: 20100831, end: 20111208
  4. SIMVASTATIN [Suspect]
  5. ASPIRIN [Concomitant]
  6. LASIX [Concomitant]
     Dates: start: 20111126

REACTIONS (2)
  - Hepatic cirrhosis [Not Recovered/Not Resolved]
  - Basal cell carcinoma [Recovered/Resolved]
